FAERS Safety Report 7369316-3 (Version None)
Quarter: 2011Q1

REPORT INFORMATION
  Report Type: 
  Country: None (occurrence: None)
  Receive Date: 20110323
  Receipt Date: 20110314
  Transmission Date: 20110831
  Serious: Yes (Hospitalization)
  Sender: FDA-Public Use
  Company Number: B0706063A

PATIENT
  Age: 48 Year
  Sex: Female

DRUGS (3)
  1. INTELENCE [Suspect]
     Indication: HIV INFECTION
     Route: 048
     Dates: start: 20101213, end: 20110314
  2. ISENTRESS [Suspect]
     Indication: HIV INFECTION
     Route: 048
     Dates: start: 20101213, end: 20110314
  3. CELSENTRI [Suspect]
     Indication: HIV INFECTION
     Route: 048
     Dates: start: 20101213, end: 20110314

REACTIONS (5)
  - FEELING HOT [None]
  - PROTHROMBIN LEVEL DECREASED [None]
  - VOMITING [None]
  - ABDOMINAL PAIN [None]
  - HEPATITIS ACUTE [None]
